FAERS Safety Report 6081680-4 (Version None)
Quarter: 2009Q1

REPORT INFORMATION
  Report Type: 
  Country: None (occurrence: None)
  Receive Date: 20090213
  Receipt Date: 20090202
  Transmission Date: 20090719
  Serious: No
  Sender: FDA-Public Use
  Company Number: 005545

PATIENT
  Age: 60 Year
  Sex: Male

DRUGS (9)
  1. PLETAL [Suspect]
     Indication: CEREBRAL INFARCTION
     Dosage: 50 MG, BID ORAL
     Route: 048
     Dates: start: 20081115, end: 20090109
  2. BLOPRESS GFR (CANDESARTAN CILEXETIL) TABLET [Concomitant]
  3. MAINTATE (BISOPROLOL) TABLET [Concomitant]
  4. PARIET (SODIUM RABEPRAZOLE) TABLET [Concomitant]
  5. ALLOPURINOL [Concomitant]
  6. NORVASC DEN (AMLODIPINE BESILATE) TABLET [Concomitant]
  7. ALDOMET (METHYLDOPA) TABLET [Concomitant]
  8. LASIX [Concomitant]
  9. PRECIPITATED CALCIUM CARBONATE (PRECIPITATED CALCIUM CARBONATE) POWDER [Concomitant]

REACTIONS (1)
  - RENAL FAILURE ACUTE [None]
